FAERS Safety Report 4510334-8 (Version None)
Quarter: 2004Q4

REPORT INFORMATION
  Report Type: 
  Country: None (occurrence: None)
  Receive Date: 20041124
  Receipt Date: 20041115
  Transmission Date: 20050328
  Serious: Yes (Life-Threatening, Disabling)
  Sender: FDA-Public Use
  Company Number: US-MERCK-0411USA02663

PATIENT
  Age: 70 Year
  Sex: Female

DRUGS (2)
  1. ZETIA [Suspect]
     Indication: BLOOD CHOLESTEROL INCREASED
     Route: 048
     Dates: start: 20041108, end: 20041110
  2. ZOCOR [Concomitant]
     Route: 065

REACTIONS (2)
  - DYSPNOEA [None]
  - OEDEMA MOUTH [None]
